FAERS Safety Report 8932845 (Version 1)
Quarter: 2012Q4

REPORT INFORMATION
  Report Type: 
  Country: US (occurrence: US)
  Receive Date: 20121128
  Receipt Date: 20121128
  Transmission Date: 20130627
  Serious: No
  Sender: FDA-Public Use
  Company Number: US-BAYER-2012-124286

PATIENT
  Age: 49 Year
  Sex: Female

DRUGS (2)
  1. ALEVE LIQUID GELS [Suspect]
     Indication: PAIN RELIEF
     Dosage: 1 DF, BID
     Route: 048
     Dates: start: 201210, end: 201210
  2. ALEVE CAPLET/TABLET,MIDOL EXTENDED RELIEF CAPLET [Suspect]
     Indication: PAIN RELIEF
     Dosage: 1 DF, BID
     Route: 048
     Dates: start: 201006

REACTIONS (1)
  - Incorrect drug administration duration [None]
